FAERS Safety Report 8561898-9 (Version None)
Quarter: 2012Q3

REPORT INFORMATION
  Report Type: 
  Country: None (occurrence: None)
  Receive Date: 20120802
  Receipt Date: 20120723
  Transmission Date: 20120928
  Serious: Yes (Other)
  Sender: FDA-Public Use
  Company Number: US-AMGEN-USASP2011053556

PATIENT
  Age: 7 Year
  Sex: Female

DRUGS (2)
  1. TREXALL [Concomitant]
     Dosage: 5 MG, QWK
  2. ENBREL [Suspect]
     Indication: PSORIATIC ARTHROPATHY
     Dosage: 0.5 ML, 2 TIMES/WK
     Dates: start: 20110827

REACTIONS (3)
  - ABDOMINAL PAIN UPPER [None]
  - PYREXIA [None]
  - OROPHARYNGEAL PAIN [None]
